FAERS Safety Report 21352761 (Version 1)
Quarter: 2022Q3

REPORT INFORMATION
  Report Type: Spontaneous
  Country: US (occurrence: US)
  Receive Date: 20220920
  Receipt Date: 20220920
  Transmission Date: 20221027
  Serious: No
  Sender: FDA-Public Use
  Company Number: US-CIPLA LTD.-2022US01893

PATIENT

DRUGS (1)
  1. DICLOFENAC [Suspect]
     Active Substance: DICLOFENAC
     Indication: Arthritis
     Dosage: UNK, APPLIED ONE TIME
     Route: 061

REACTIONS (4)
  - Skin burning sensation [Unknown]
  - Erythema [Unknown]
  - Skin reaction [Unknown]
  - Application site reaction [Unknown]
